FAERS Safety Report 6181135-2 (Version None)
Quarter: 2009Q2

REPORT INFORMATION
  Report Type: 
  Country: None (occurrence: None)
  Receive Date: 20090506
  Receipt Date: 20090428
  Transmission Date: 20091009
  Serious: Yes (Other)
  Sender: FDA-Public Use
  Company Number: PHEH2009US04174

PATIENT
  Sex: Female

DRUGS (17)
  1. FEMARA [Suspect]
     Dosage: UNK
     Dates: start: 20090428
  2. COREG [Concomitant]
  3. FUROSEMIDE [Concomitant]
  4. KLOR-CON [Concomitant]
  5. METANX [Concomitant]
  6. ASACOL [Concomitant]
  7. VITAMIN D3 [Concomitant]
  8. CULTURELLE [Concomitant]
  9. BIOTIN [Concomitant]
  10. CITRACAL [Concomitant]
  11. DULCOLAX [Concomitant]
  12. MULTIVITAMIN ^LAPPE^ [Concomitant]
  13. PRILOSEC [Concomitant]
  14. VITRON-C [Concomitant]
  15. OCUVITE                            /01053801/ [Concomitant]
  16. GLUCOSAMINE [Concomitant]
  17. CHONDROITIN A [Concomitant]

REACTIONS (4)
  - ASTHMA [None]
  - SWELLING [None]
  - THROAT TIGHTNESS [None]
  - URTICARIA [None]
